FAERS Safety Report 7591146-8 (Version None)
Quarter: 2011Q3

REPORT INFORMATION
  Report Type: 
  Country: None (occurrence: None)
  Receive Date: 20110705
  Receipt Date: 20110624
  Transmission Date: 20111222
  Serious: Yes (Hospitalization)
  Sender: FDA-Public Use
  Company Number: US-ASTRAZENECA-2011SE38224

PATIENT
  Age: 33 Year
  Sex: Female

DRUGS (3)
  1. COGENTIN [Concomitant]
  2. SEROQUEL [Suspect]
     Indication: SCHIZOAFFECTIVE DISORDER
     Route: 048
     Dates: start: 19990101
  3. SYNTHROID [Concomitant]

REACTIONS (7)
  - MENTAL DISORDER [None]
  - BRUXISM [None]
  - HEARING IMPAIRED [None]
  - CONDITION AGGRAVATED [None]
  - ADVERSE EVENT [None]
  - JAW DISORDER [None]
  - ADVERSE DRUG REACTION [None]
